FAERS Safety Report 23488407 (Version 1)
Quarter: 2024Q1

REPORT INFORMATION
  Report Type: Spontaneous
  Country: US (occurrence: None)
  Receive Date: 20240206
  Receipt Date: 20240206
  Transmission Date: 20240410
  Serious: No
  Sender: FDA-Public Use
  Company Number: None

PATIENT
  Sex: Female

DRUGS (2)
  1. COSENTYX [Suspect]
     Active Substance: SECUKINUMAB
     Indication: Ankylosing spondylitis
     Dosage: INJ
     Route: 042
  2. COSENTYX [Suspect]
     Active Substance: SECUKINUMAB
     Indication: Psoriatic arthropathy

REACTIONS (12)
  - Respiratory tract congestion [None]
  - Diarrhoea [None]
  - Oral herpes [None]
  - Viral infection [None]
  - Dysphagia [None]
  - Oropharyngeal pain [None]
  - Secretion discharge [None]
  - Dyspnoea [None]
  - Weight decreased [None]
  - Illness [None]
  - Cardiac failure congestive [None]
  - Respiratory syncytial virus infection [None]

NARRATIVE: CASE EVENT DATE: 20231001
